FAERS Safety Report 4928328-7 (Version None)
Quarter: 2006Q1

REPORT INFORMATION
  Report Type: 
  Country: None (occurrence: None)
  Receive Date: 20060228
  Receipt Date: 20051020
  Transmission Date: 20060701
  Serious: Yes (Death, Hospitalization)
  Sender: FDA-Public Use
  Company Number: US-MERCK-0510USA08468

PATIENT
  Sex: Female
  Weight: 61 kg

DRUGS (8)
  1. VIOXX [Suspect]
     Indication: ARTHRITIS
     Route: 048
     Dates: start: 20000901, end: 20030929
  2. PREMARIN [Concomitant]
     Indication: HORMONE REPLACEMENT THERAPY
     Route: 065
     Dates: start: 19880101, end: 20030901
  3. PRAVACHOL [Concomitant]
     Indication: BLOOD CHOLESTEROL INCREASED
     Route: 065
     Dates: start: 19991101, end: 20030901
  4. PRILOSEC [Concomitant]
     Indication: GASTROOESOPHAGEAL REFLUX DISEASE
     Route: 048
  5. AMITRIPTYLINE HYDROCHLORIDE [Concomitant]
     Indication: DEPRESSION
     Route: 065
     Dates: end: 20030901
  6. FOSAMAX [Concomitant]
     Indication: OSTEOPOROSIS
     Route: 048
  7. SYNTHROID [Concomitant]
     Indication: THYROID DISORDER
     Route: 065
  8. MIACALCIN [Concomitant]
     Indication: OSTEOPOROSIS
     Route: 065

REACTIONS (15)
  - ABDOMINAL PAIN LOWER [None]
  - AMAUROSIS FUGAX [None]
  - ANAL SPHINCTER ATONY [None]
  - BRAIN HERNIATION [None]
  - BRONCHITIS [None]
  - CATARACT CORTICAL [None]
  - CATARACT NUCLEAR [None]
  - CEREBROVASCULAR ACCIDENT [None]
  - CORONARY ARTERY EMBOLISM [None]
  - FAECAL INCONTINENCE [None]
  - GLYCOSURIA [None]
  - MYOCARDIAL INFARCTION [None]
  - STRESS INCONTINENCE [None]
  - URINARY TRACT INFECTION [None]
  - VAGINAL INFECTION [None]
